FAERS Safety Report 6929553-6 (Version None)
Quarter: 2010Q3

REPORT INFORMATION
  Report Type: 
  Country: None (occurrence: None)
  Receive Date: 20100813
  Receipt Date: 20100805
  Transmission Date: 20110219
  Serious: Yes (Hospitalization)
  Sender: FDA-Public Use
  Company Number: A0826065A

PATIENT
  Age: 84 Year
  Sex: Male

DRUGS (2)
  1. KETOCONAZOLE [Suspect]
     Indication: PROSTATE CANCER
  2. SIMVASTATIN [Suspect]

REACTIONS (2)
  - DRUG INTERACTION [None]
  - RHABDOMYOLYSIS [None]
